FAERS Safety Report 14768257 (Version 1)
Quarter: 2018Q2

REPORT INFORMATION
  Report Type: Report from Study
  Country: BR (occurrence: BR)
  Receive Date: 20180417
  Receipt Date: 20180417
  Transmission Date: 20180711
  Serious: Yes (Hospitalization)
  Sender: FDA-Public Use
  Company Number: PHHY2018BR064219

PATIENT
  Age: 7 Year
  Sex: Male

DRUGS (3)
  1. RITALIN LA [Suspect]
     Active Substance: METHYLPHENIDATE HYDROCHLORIDE
     Indication: PSYCHOMOTOR HYPERACTIVITY
  2. RISPERIDONE. [Concomitant]
     Active Substance: RISPERIDONE
     Indication: PRODUCT USED FOR UNKNOWN INDICATION
     Route: 065
  3. RITALIN LA [Suspect]
     Active Substance: METHYLPHENIDATE HYDROCHLORIDE
     Indication: AGITATION
     Dosage: 20 MG, QD
     Route: 048
     Dates: start: 20180328

REACTIONS (3)
  - Eye allergy [Recovering/Resolving]
  - Eye pain [Recovering/Resolving]
  - Superficial injury of eye [Recovering/Resolving]

NARRATIVE: CASE EVENT DATE: 20180328
